FAERS Safety Report 5656984-7 (Version None)
Quarter: 2008Q1

REPORT INFORMATION
  Report Type: 
  Country: None (occurrence: None)
  Receive Date: 20080310
  Receipt Date: 20080227
  Transmission Date: 20080703
  Serious: Yes (Death, Hospitalization)
  Sender: FDA-Public Use
  Company Number: B0511265A

PATIENT
  Age: 65 Year
  Sex: Male

DRUGS (17)
  1. ARIXTRA [Suspect]
     Indication: DEEP VEIN THROMBOSIS
     Dosage: 7.5MG PER DAY
     Route: 058
     Dates: start: 20080128, end: 20080129
  2. AUGMENTIN '125' [Suspect]
     Indication: ERYSIPELAS
     Dosage: 1G THREE TIMES PER DAY
     Route: 042
     Dates: start: 20080121, end: 20080127
  3. AUGMENTIN '125' [Suspect]
     Indication: ERYSIPELAS
     Dosage: 1G THREE TIMES PER DAY
     Route: 048
     Dates: start: 20080128, end: 20080131
  4. LOVENOX [Suspect]
     Indication: DEEP VEIN THROMBOSIS
     Dosage: .7ML PER DAY
     Route: 058
     Dates: start: 20080121, end: 20080127
  5. IMOVANE [Suspect]
     Dosage: 7.5MG PER DAY
     Route: 048
     Dates: start: 20080121, end: 20080130
  6. LYSANXIA [Suspect]
     Dosage: 10MG PER DAY
     Route: 048
     Dates: start: 20080121, end: 20080131
  7. FLAGYL [Suspect]
     Indication: ERYSIPELAS
     Dosage: 500MG TWICE PER DAY
     Route: 042
     Dates: start: 20080123, end: 20080127
  8. FLAGYL [Suspect]
     Dosage: 500MG TWICE PER DAY
     Route: 048
     Dates: start: 20080128, end: 20080131
  9. COLCHIMAX [Suspect]
     Dosage: 1TAB PER DAY
     Route: 048
     Dates: start: 20080123, end: 20080131
  10. ZYLORIC [Concomitant]
     Route: 065
  11. TARCEVA [Concomitant]
     Route: 065
  12. OXYNORM [Concomitant]
     Route: 065
  13. DURAGESIC-100 [Concomitant]
     Route: 065
  14. MOPRAL [Concomitant]
     Route: 065
  15. LASILIX [Concomitant]
     Route: 065
  16. SOLU-MEDROL [Concomitant]
     Route: 065
  17. HUMALOG MIX [Concomitant]
     Route: 065

REACTIONS (5)
  - ABDOMINAL PAIN [None]
  - GENERAL PHYSICAL HEALTH DETERIORATION [None]
  - HAEMATURIA [None]
  - MUSCLE HAEMORRHAGE [None]
  - SHOCK HAEMORRHAGIC [None]
